FAERS Safety Report 5608828-7 (Version None)
Quarter: 2008Q1

REPORT INFORMATION
  Report Type: 
  Country: None (occurrence: None)
  Receive Date: 20080131
  Receipt Date: 20080123
  Transmission Date: 20080703
  Serious: Yes (Death)
  Sender: FDA-Public Use
  Company Number: NL-TEVA-166778ISR

PATIENT

DRUGS (1)
  1. SERTRALINE [Suspect]
     Indication: PANIC DISORDER
     Route: 064
     Dates: start: 20050724

REACTIONS (2)
  - DEATH NEONATAL [None]
  - HYPOTONIA NEONATAL [None]
